FAERS Safety Report 18379307 (Version 1)
Quarter: 2020Q4

REPORT INFORMATION
  Report Type: Spontaneous
  Country: US (occurrence: US)
  Receive Date: 20201013
  Receipt Date: 20201013
  Transmission Date: 20210114
  Serious: No
  Sender: FDA-Public Use
  Company Number: US-PFIZER INC-2020393063

PATIENT
  Age: 50 Year
  Sex: Female
  Weight: 93.44 kg

DRUGS (1)
  1. CHANTIX [Suspect]
     Active Substance: VARENICLINE TARTRATE
     Indication: NICOTINE DEPENDENCE
     Dosage: UNK

REACTIONS (2)
  - Therapeutic response unexpected [Unknown]
  - Euphoric mood [Unknown]
